FAERS Safety Report 22962756 (Version 2)
Quarter: 2023Q4

REPORT INFORMATION
  Report Type: Spontaneous
  Country: CA (occurrence: CA)
  Receive Date: 20230920
  Receipt Date: 20231011
  Transmission Date: 20240110
  Serious: Yes (Hospitalization)
  Sender: FDA-Public Use
  Company Number: CA-PFIZER INC-PV202300156468

PATIENT
  Age: 71 Year
  Sex: Female

DRUGS (2)
  1. IBRANCE [Suspect]
     Active Substance: PALBOCICLIB
     Dosage: 75 MG, 1X/DAY (1 TAB OD FOR 21 DAYS, THEN 7 DAYS OFF)
     Dates: start: 20230901
  2. FULVESTRANT [Concomitant]
     Active Substance: FULVESTRANT
     Dosage: UNK

REACTIONS (3)
  - Pyrexia [Unknown]
  - Hepatic enzyme increased [Unknown]
  - Illness [Unknown]

NARRATIVE: CASE EVENT DATE: 20230901
